FAERS Safety Report 23441178 (Version 3)
Quarter: 2024Q4

REPORT INFORMATION
  Report Type: Spontaneous
  Country: BR (occurrence: BR)
  Receive Date: 20240125
  Receipt Date: 20241014
  Transmission Date: 20250115
  Serious: Yes (Other)
  Sender: ABBVIE
  Company Number: BR-ABBOTT-2024A-1376378

PATIENT
  Sex: Female
  Weight: 49 kg

DRUGS (1)
  1. CREON [Suspect]
     Active Substance: PANCRELIPASE AMYLASE\PANCRELIPASE LIPASE\PANCRELIPASE PROTEASE
     Indication: Pancreatic enzyme abnormality
     Dosage: 25 000 1 CAPSULE IN THE MORNING, 3 CAPSULES AT LUNCH, 1 CAPSULE SNACK TIME/AFTERNOON BREAK AND 3 ...
     Route: 048
     Dates: start: 2005

REACTIONS (5)
  - Pancreatic carcinoma [Not Recovered/Not Resolved]
  - Flatulence [Not Recovered/Not Resolved]
  - Abnormal faeces [Not Recovered/Not Resolved]
  - Emotional disorder [Not Recovered/Not Resolved]
  - Product quality issue [Unknown]
